FAERS Safety Report 23819282 (Version 6)
Quarter: 2024Q3

REPORT INFORMATION
  Report Type: Spontaneous
  Country: BR (occurrence: BR)
  Receive Date: 20240506
  Receipt Date: 20240814
  Transmission Date: 20241016
  Serious: Yes (Other)
  Sender: SANDOZ
  Company Number: BR-002147023-NVSC2023BR134202

PATIENT
  Age: 71 Year
  Sex: Female
  Weight: 65 kg

DRUGS (11)
  1. FULVESTRANT [Suspect]
     Active Substance: FULVESTRANT
     Indication: Product used for unknown indication
     Dosage: UNK UNK, QMO
     Route: 065
     Dates: start: 20240405
  2. FULVESTRANT [Suspect]
     Active Substance: FULVESTRANT
     Dosage: UNK
     Route: 065
     Dates: start: 202304
  3. FULVESTRANT [Suspect]
     Active Substance: FULVESTRANT
     Dosage: UNK ROUTE OF ADMIN (FREE TEXT): INJECTION NOT OTHERWISE SPECIFIED
     Route: 065
     Dates: start: 202304
  4. FULVESTRANT [Suspect]
     Active Substance: FULVESTRANT
     Dosage: UNK ROUTE OF ADMIN (FREE TEXT): INJECTION NOT OTHERWISE SPECIFIED
     Route: 065
     Dates: start: 202304
  5. FULVESTRANT [Suspect]
     Active Substance: FULVESTRANT
     Dosage: UNK, QMO ROUTE OF ADMIN (FREE TEXT): INJECTION NOT OTHERWISE SPECIFIED
     Route: 065
     Dates: start: 20240405
  6. FULVESTRANT [Suspect]
     Active Substance: FULVESTRANT
     Dosage: UNK, QMO ROUTE OF ADMIN (FREE TEXT): INJECTION NOT OTHERWISE SPECIFIED
     Route: 065
     Dates: start: 20240405
  7. KISQALI [Suspect]
     Active Substance: RIBOCICLIB
     Indication: Metastases to lung
     Dosage: UNK
     Route: 065
  8. KISQALI [Suspect]
     Active Substance: RIBOCICLIB
     Dosage: 3 DOSAGE FORM, OTHER (03 TABLETS PER DAY)
     Route: 065
  9. KISQALI [Suspect]
     Active Substance: RIBOCICLIB
     Indication: Metastatic neoplasm
     Dosage: 3 DF, QD
     Route: 048
     Dates: start: 202404
  10. KISQALI [Suspect]
     Active Substance: RIBOCICLIB
     Indication: Breast cancer
     Dosage: UNK
     Route: 065
     Dates: start: 20230421
  11. FASLODEX [Concomitant]
     Active Substance: FULVESTRANT
     Indication: Breast cancer metastatic
     Dosage: UNK
     Route: 065

REACTIONS (22)
  - Diabetes mellitus [Unknown]
  - Pneumonia viral [Recovering/Resolving]
  - Neutropenia [Recovering/Resolving]
  - Gait disturbance [Recovered/Resolved]
  - Decreased appetite [Recovering/Resolving]
  - Abdominal pain upper [Recovered/Resolved]
  - Peripheral swelling [Unknown]
  - Fatigue [Recovered/Resolved]
  - White blood cell count decreased [Unknown]
  - Blood pressure abnormal [Unknown]
  - Weight decreased [Recovering/Resolving]
  - Malaise [Recovered/Resolved]
  - Pain in extremity [Recovering/Resolving]
  - Dysstasia [Recovering/Resolving]
  - Gait disturbance [Recovering/Resolving]
  - Asthenia [Recovered/Resolved]
  - Decreased immune responsiveness [Recovered/Resolved]
  - Dizziness [Recovering/Resolving]
  - Platelet count decreased [Recovered/Resolved]
  - Influenza [Recovered/Resolved]
  - Discouragement [Recovered/Resolved]
  - Asthenia [Recovering/Resolving]

NARRATIVE: CASE EVENT DATE: 20230401
